FAERS Safety Report 11063575 (Version 1)
Quarter: 2015Q2

REPORT INFORMATION
  Report Type: Spontaneous
  Country: US (occurrence: US)
  Receive Date: 20150424
  Receipt Date: 20150424
  Transmission Date: 20150821
  Serious: Yes (Hospitalization, Other)
  Sender: FDA-Public Use
  Company Number: US-GLAXOSMITHKLINE-US2015GSK054082

PATIENT
  Age: 31 Year
  Sex: Female
  Weight: 55 kg

DRUGS (6)
  1. VITAMIN D3 [Concomitant]
     Active Substance: CHOLECALCIFEROL
  2. VALIUM [Concomitant]
     Active Substance: DIAZEPAM
  3. ABILIFY [Concomitant]
     Active Substance: ARIPIPRAZOLE
  4. LAMICTAL [Suspect]
     Active Substance: LAMOTRIGINE
     Indication: PRODUCT USED FOR UNKNOWN INDICATION
     Dosage: 360 MG, BID
     Route: 048
  5. ONFI [Suspect]
     Active Substance: CLOBAZAM
     Indication: SEIZURE
     Dosage: 5 MG, QD
     Route: 048
     Dates: start: 20141120, end: 20150206
  6. BANZEL [Concomitant]
     Active Substance: RUFINAMIDE

REACTIONS (2)
  - Aplasia pure red cell [Unknown]
  - Anaemia [Unknown]

NARRATIVE: CASE EVENT DATE: 20150202
